FAERS Safety Report 17464517 (Version 1)
Quarter: 2020Q1

REPORT INFORMATION
  Report Type: Spontaneous
  Country: CN (occurrence: CN)
  Receive Date: 20200226
  Receipt Date: 20200226
  Transmission Date: 20200409
  Serious: Yes (Disabling, Other)
  Sender: FDA-Public Use
  Company Number: CN-PFIZER INC-2020080636

PATIENT
  Age: 39 Year
  Sex: Female
  Weight: 45 kg

DRUGS (5)
  1. GLUCOSE INJECTION [Concomitant]
     Active Substance: DEXTROSE
     Dosage: 500 ML, 2X/DAY
     Route: 041
     Dates: start: 20200205, end: 20200207
  2. GLUCOSE INJECTION [Concomitant]
     Active Substance: DEXTROSE
     Dosage: 250 ML, 1X/DAY
     Route: 041
     Dates: start: 20200204, end: 20200204
  3. METHOTREXATE. [Suspect]
     Active Substance: METHOTREXATE
     Indication: T-CELL LYMPHOMA
     Dosage: 2 G, 1X/DAY
     Route: 041
     Dates: start: 20200204, end: 20200204
  4. GLUCOSE INJECTION [Concomitant]
     Active Substance: DEXTROSE
     Indication: VEHICLE SOLUTION USE
     Dosage: 500 ML, 3X/DAY
     Route: 041
     Dates: start: 20200204, end: 20200204
  5. CYTOSAR [Suspect]
     Active Substance: CYTARABINE
     Indication: T-CELL LYMPHOMA
     Dosage: 2.7 G, 2X/DAY
     Route: 041
     Dates: start: 20200205, end: 20200207

REACTIONS (3)
  - Alanine aminotransferase increased [Recovered/Resolved]
  - Hepatic function abnormal [Recovered/Resolved]
  - Aspartate aminotransferase increased [Recovered/Resolved]

NARRATIVE: CASE EVENT DATE: 20200209
